FAERS Safety Report 9771466 (Version 1)
Quarter: 2013Q4

REPORT INFORMATION
  Report Type: Spontaneous
  Country: IN (occurrence: IN)
  Receive Date: 20131219
  Receipt Date: 20131219
  Transmission Date: 20140711
  Serious: Yes (Death)
  Sender: FDA-Public Use
  Company Number: IN-ROCHE-1321995

PATIENT
  Sex: 0

DRUGS (1)
  1. METALYSE [Suspect]
     Indication: ACUTE MYOCARDIAL INFARCTION
     Route: 065
     Dates: start: 20131211, end: 20131211

REACTIONS (1)
  - Death [Fatal]
